FAERS Safety Report 10168700 (Version 3)
Quarter: 2014Q3

REPORT INFORMATION
  Report Type: Spontaneous
  Country: US (occurrence: None)
  Receive Date: 20140509
  Receipt Date: 20140709
  Transmission Date: 20150326
  Serious: Yes (Hospitalization)
  Sender: FDA-Public Use
  Company Number: AUR-APL-2014-05446

PATIENT
  Age: 57 Year
  Sex: Male
  Weight: 124.3 kg

DRUGS (13)
  1. ONDANSETRON. [Concomitant]
     Active Substance: ONDANSETRON
  2. ACETAMINOPHEN (PARACETAMOL) [Concomitant]
     Active Substance: ACETAMINOPHEN
  3. ACYCLOVIR (ACYCLOVIR) [Concomitant]
     Active Substance: ACYCLOVIR
  4. SODIUM BICARBONATE MOUTH RINSE (SODIUM BICARBONATE) [Concomitant]
  5. LISINOPRIL. [Suspect]
     Active Substance: LISINOPRIL
     Indication: HYPERTENSION
     Route: 048
     Dates: start: 20140416, end: 20140418
  6. PREDNISOLONE OPTHALMIC (PREDNISOLONE) [Concomitant]
  7. OXYCODONE (OXYCODONE) [Concomitant]
     Active Substance: OXYCODONE
  8. ALTEPLASE (ALTEPLASE) [Concomitant]
     Active Substance: ALTEPLASE
  9. ALLOPURINOL (ALLOPURINOL) [Concomitant]
     Active Substance: ALLOPURINOL
  10. MAGNESIUM SULFATE (MAGNESIUM SULFATE) [Concomitant]
  11. BENADRYL [Concomitant]
     Active Substance: DIPHENHYDRAMINE HYDROCHLORIDE
  12. CYTARABINE. [Suspect]
     Active Substance: CYTARABINE
     Indication: ACUTE LYMPHOCYTIC LEUKAEMIA
     Dosage: 3 GM (1.5 GM,1 IN 12 HR),INTRAVENOUS
     Route: 042
     Dates: start: 20140418, end: 20140423
  13. INSULIN (INSULIN) [Concomitant]
     Active Substance: INSULIN NOS

REACTIONS (6)
  - Dysphagia [None]
  - Respiratory tract oedema [None]
  - Lymphadenopathy [None]
  - Odynophagia [None]
  - Febrile neutropenia [None]
  - Oedema [None]

NARRATIVE: CASE EVENT DATE: 20140425
